FAERS Safety Report 5650152-0 (Version None)
Quarter: 2008Q1

REPORT INFORMATION
  Report Type: 
  Country: None (occurrence: None)
  Receive Date: 20080131
  Receipt Date: 20071227
  Transmission Date: 20080703
  Serious: No
  Sender: FDA-Public Use
  Company Number: US200712005157

PATIENT
  Age: 67 Year
  Sex: Female
  Weight: 122.4 kg

DRUGS (3)
  1. BYETTA [Suspect]
     Indication: TYPE 2 DIABETES MELLITUS
     Dosage: 5 UG, 2/D, SUBCUTANEOUS
     Route: 058
     Dates: start: 20070301
  2. HUMULIN N [Concomitant]
  3. HUMULIN R [Concomitant]

REACTIONS (6)
  - BREAST DISCHARGE [None]
  - NAUSEA [None]
  - PROTEIN URINE PRESENT [None]
  - STOMACH DISCOMFORT [None]
  - VAGINAL DISCHARGE [None]
  - WEIGHT DECREASED [None]
